FAERS Safety Report 7017347-5 (Version None)
Quarter: 2010Q3

REPORT INFORMATION
  Report Type: 
  Country: None (occurrence: None)
  Receive Date: 20100928
  Receipt Date: 20100924
  Transmission Date: 20110219
  Serious: No
  Sender: FDA-Public Use
  Company Number: US-BIOGENIDEC-2010BI033026

PATIENT
  Sex: Female

DRUGS (3)
  1. AVONEX [Suspect]
     Indication: MULTIPLE SCLEROSIS
     Route: 030
     Dates: start: 20070101, end: 20100901
  2. BLOOD PRESSURE MEDICATION (NOS) [Concomitant]
     Indication: HYPERTENSION
  3. STOOL SOFTNER [Concomitant]
     Indication: CONSTIPATION
     Route: 048

REACTIONS (8)
  - ARTHRALGIA [None]
  - CONSTIPATION [None]
  - DYSPNOEA [None]
  - FALL [None]
  - GAIT DISTURBANCE [None]
  - HOUSE DUST ALLERGY [None]
  - MUSCLE SPASMS [None]
  - PAIN [None]
